FAERS Safety Report 10016154 (Version 4)
Quarter: 2015Q2

REPORT INFORMATION
  Report Type: Spontaneous
  Country: US (occurrence: US)
  Receive Date: 20140317
  Receipt Date: 20150617
  Transmission Date: 20150821
  Serious: Yes (Hospitalization, Disabling, Other)
  Sender: FDA-Public Use
  Company Number: US-SANOFI-AVENTIS-2012SA041936

PATIENT
  Age: 61 Year
  Sex: Female

DRUGS (34)
  1. NITROSTAT [Concomitant]
     Active Substance: NITROGLYCERIN
     Indication: CHEST PAIN
     Route: 060
  2. VITAMIN E [Concomitant]
     Active Substance: .ALPHA.-TOCOPHEROL
  3. IMITREX [Concomitant]
     Active Substance: SUMATRIPTAN\SUMATRIPTAN SUCCINATE
     Indication: MIGRAINE
     Route: 048
  4. ZOLOFT [Concomitant]
     Active Substance: SERTRALINE HYDROCHLORIDE
  5. ERTAPENEM [Concomitant]
     Active Substance: ERTAPENEM
  6. PLAVIX [Suspect]
     Active Substance: CLOPIDOGREL BISULFATE
     Indication: CORONARY ARTERY DISEASE
     Route: 048
     Dates: start: 20011026, end: 20090619
  7. SALMETEROL [Concomitant]
     Active Substance: SALMETEROL
  8. CELEBREX [Concomitant]
     Active Substance: CELECOXIB
  9. ZYRTEC [Concomitant]
     Active Substance: CETIRIZINE HYDROCHLORIDE
  10. GLUCOSAMINE [Concomitant]
     Active Substance: GLUCOSAMINE
  11. VITAMIN B6 [Concomitant]
     Active Substance: PYRIDOXINE HYDROCHLORIDE
  12. VERSED [Concomitant]
     Active Substance: MIDAZOLAM HYDROCHLORIDE
  13. ZEGERID [Concomitant]
     Active Substance: OMEPRAZOLE\SODIUM BICARBONATE
     Dosage: 40-1100 MG
  14. DYCLONINE [Concomitant]
     Active Substance: DYCLONINE
  15. ATROVENT [Concomitant]
     Active Substance: IPRATROPIUM BROMIDE
  16. NICOTINE. [Concomitant]
     Active Substance: NICOTINE
  17. LEVAQUIN [Concomitant]
     Active Substance: LEVOFLOXACIN
  18. CALCIUM [Concomitant]
     Active Substance: CALCIUM
  19. ADVAIR HFA [Concomitant]
     Active Substance: FLUTICASONE PROPIONATE\SALMETEROL XINAFOATE
     Dosage: INHALED ONCE, TWICE A DAY
     Route: 055
  20. ACCOLATE [Concomitant]
     Active Substance: ZAFIRLUKAST
  21. LIPITOR [Concomitant]
     Active Substance: ATORVASTATIN CALCIUM
  22. VAGIFEM [Concomitant]
     Active Substance: ESTRADIOL
     Dosage: TWICE A WEEK
  23. ZOFRAN [Concomitant]
     Active Substance: ONDANSETRON HYDROCHLORIDE
  24. MORPHINE [Concomitant]
     Active Substance: MORPHINE
  25. PERCOCET [Concomitant]
     Active Substance: ACETAMINOPHEN\OXYCODONE HYDROCHLORIDE
  26. DICYCLOMINE [Concomitant]
     Active Substance: DICYCLOMINE HYDROCHLORIDE
  27. PROTONIX [Concomitant]
     Active Substance: PANTOPRAZOLE SODIUM
  28. VITAMIN C [Concomitant]
     Active Substance: ASCORBIC ACID
  29. HYOSCYAMINE [Concomitant]
     Active Substance: HYOSCYAMINE
     Route: 060
  30. DUONEB [Concomitant]
     Active Substance: ALBUTEROL SULFATE\IPRATROPIUM BROMIDE
  31. SENNA [Concomitant]
     Active Substance: SENNA LEAF\SENNOSIDES\SENNOSIDES A AND B
     Route: 048
  32. ELAVIL [Concomitant]
     Active Substance: AMITRIPTYLINE HYDROCHLORIDE
  33. DILTIAZEM [Concomitant]
     Active Substance: DILTIAZEM
  34. ASPIRIN. [Concomitant]
     Active Substance: ASPIRIN

REACTIONS (11)
  - Deformity [Unknown]
  - Loss of employment [Unknown]
  - Psychological trauma [Unknown]
  - Economic problem [Unknown]
  - Multiple injuries [Not Recovered/Not Resolved]
  - Tension [Unknown]
  - Physical disability [Unknown]
  - Social problem [Unknown]
  - Anhedonia [Unknown]
  - Gastrointestinal haemorrhage [Recovered/Resolved]
  - Pain [Unknown]

NARRATIVE: CASE EVENT DATE: 20090606
